APPROVED DRUG PRODUCT: AMINOACETIC ACID 1.5% IN PLASTIC CONTAINER
Active Ingredient: GLYCINE
Strength: 1.5GM/100ML
Dosage Form/Route: SOLUTION;IRRIGATION
Application: N017865 | Product #001 | TE Code: AT
Applicant: BAXTER HEALTHCARE CORP
Approved: Approved Prior to Jan 1, 1982 | RLD: Yes | RS: Yes | Type: RX